FAERS Safety Report 4439820-6 (Version None)
Quarter: 2004Q3

REPORT INFORMATION
  Report Type: 
  Country: None (occurrence: None)
  Receive Date: 20040831
  Receipt Date: 20040816
  Transmission Date: 20050211
  Serious: Yes (Hospitalization)
  Sender: FDA-Public Use
  Company Number: 04H-163-0271279-00

PATIENT
  Age: 73 Year
  Sex: Male

DRUGS (2)
  1. AMINOSYN 10% [Suspect]
     Indication: PARENTERAL NUTRITION
     Dosage: 2ML/KG/HR (10%), OVER 96 HRS. EVERY 3 WKS, INTRAVENOUS
     Route: 042
  2. ACIVICIN [Suspect]
     Indication: RECTAL CANCER
     Dosage: 60 MG/M2/DAY, OVER 72HRS. EVERY 3 WEEKS, INTRAVENOUS
     Route: 042

REACTIONS (6)
  - DRUG TOXICITY [None]
  - HYPOTENSION [None]
  - NEUROTOXICITY [None]
  - NEUTROPENIA [None]
  - PNEUMONIA ASPIRATION [None]
  - THROMBOCYTOPENIA [None]
